FAERS Safety Report 15525230 (Version 4)
Quarter: 2019Q4

REPORT INFORMATION
  Report Type: Spontaneous
  Country: DK (occurrence: DK)
  Receive Date: 20181019
  Receipt Date: 20191206
  Transmission Date: 20200122
  Serious: Yes (Death, Hospitalization)
  Sender: FDA-Public Use
  Company Number: DK-ELI_LILLY_AND_COMPANY-DK201810007966

PATIENT
  Age: 26 Year
  Sex: Female

DRUGS (9)
  1. FLUOXETINE HYDROCHLORIDE. [Suspect]
     Active Substance: FLUOXETINE HYDROCHLORIDE
     Indication: OBSESSIVE-COMPULSIVE DISORDER
     Dosage: 10 MG, DAILY
     Route: 048
     Dates: start: 2005
  2. IMOCLONE [Concomitant]
     Active Substance: ZOPICLONE
     Indication: INSOMNIA
     Dosage: 3.75 MG, PRN
     Route: 048
     Dates: start: 20180319
  3. CALCIUM CARBONATE;COLECALCIFEROL [Concomitant]
     Active Substance: CALCIUM CARBONATE\CHOLECALCIFEROL
     Indication: CALCIUM DEFICIENCY
     Dosage: 2 DOSAGE FORM, DAILY
     Route: 048
     Dates: start: 20120723
  4. NITOMAN [Concomitant]
     Active Substance: TETRABENAZINE
     Indication: TOURETTE^S DISORDER
     Dosage: 37.5 MG, DAILY
     Route: 048
     Dates: start: 20180325
  5. FLUOXETINE HYDROCHLORIDE. [Suspect]
     Active Substance: FLUOXETINE HYDROCHLORIDE
     Dosage: 60 MG, DAILY
     Route: 048
     Dates: start: 2008
  6. OLANZAPINE. [Concomitant]
     Active Substance: OLANZAPINE
     Indication: PRODUCT USED FOR UNKNOWN INDICATION
     Dosage: 2.5 MG, UNKNOWN
     Route: 048
     Dates: start: 20180521, end: 20180521
  7. OXAPAX [Concomitant]
     Active Substance: OXAZEPAM
     Indication: PRODUCT USED FOR UNKNOWN INDICATION
     Dosage: 15 MG, UNKNOWN
     Route: 048
     Dates: start: 20180521
  8. RIVOTRIL [Suspect]
     Active Substance: CLONAZEPAM
     Indication: PRODUCT USED FOR UNKNOWN INDICATION
     Dosage: .5 MG, UNK
     Route: 065
     Dates: start: 20180318
  9. FRISIUM [Concomitant]
     Active Substance: CLOBAZAM
     Indication: TOURETTE^S DISORDER
     Dosage: 15 MG, DAILY
     Route: 048

REACTIONS (42)
  - Drug intolerance [Fatal]
  - Hyperhidrosis [Fatal]
  - Excessive eye blinking [Fatal]
  - Tourette^s disorder [Fatal]
  - Seizure [Fatal]
  - Sluggishness [Unknown]
  - Obsessive-compulsive symptom [Fatal]
  - Confusional state [Fatal]
  - Fall [Fatal]
  - Screaming [Fatal]
  - Intentional self-injury [Fatal]
  - Staring [Fatal]
  - Tic [Fatal]
  - Toxicity to various agents [Fatal]
  - Sedation [Fatal]
  - Dyspnoea [Fatal]
  - Depressed mood [Fatal]
  - Stomatitis [Fatal]
  - General physical health deterioration [Fatal]
  - Fatigue [Fatal]
  - Emotional distress [Fatal]
  - Wound haemorrhage [Fatal]
  - Disorientation [Unknown]
  - Contusion [Unknown]
  - Feeling abnormal [Unknown]
  - Somnolence [Unknown]
  - Asthenia [Unknown]
  - Personality change due to a general medical condition [Fatal]
  - Restlessness [Fatal]
  - Tremor [Fatal]
  - Insomnia [Fatal]
  - Diarrhoea [Fatal]
  - Vomiting [Fatal]
  - Mental disorder [Fatal]
  - Cardiac arrest [Fatal]
  - Dysstasia [Fatal]
  - High-pitched crying [Fatal]
  - Balance disorder [Fatal]
  - Speech disorder [Fatal]
  - Scratch [Fatal]
  - Overdose [Fatal]
  - Cachexia [Unknown]

NARRATIVE: CASE EVENT DATE: 20180409
